FAERS Safety Report 7772635-X (Version None)
Quarter: 2011Q3

REPORT INFORMATION
  Report Type: 
  Country: None (occurrence: None)
  Receive Date: 20110922
  Receipt Date: 20110519
  Transmission Date: 20111222
  Serious: No
  Sender: FDA-Public Use
  Company Number: US-ASTRAZENECA-2011SE30655

PATIENT
  Age: 55 Year
  Sex: Female

DRUGS (9)
  1. SEROQUEL XR [Suspect]
     Indication: BIPOLAR DISORDER
     Route: 048
  2. SEROQUEL XR [Suspect]
     Dosage: EVERY EVENING
     Route: 048
  3. SEROQUEL XR [Suspect]
     Dosage: EVERY EVENING
     Route: 048
  4. SEROQUEL XR [Suspect]
     Dosage: EVERY EVENING
     Route: 048
  5. SEROQUEL XR [Suspect]
     Indication: POST-TRAUMATIC STRESS DISORDER
     Route: 048
  6. SEROQUEL XR [Suspect]
     Indication: DISSOCIATIVE DISORDER
     Route: 048
  7. SEROQUEL XR [Suspect]
     Route: 048
  8. SEROQUEL XR [Suspect]
     Route: 048
  9. SEROQUEL XR [Suspect]
     Route: 048

REACTIONS (3)
  - DRUG DOSE OMISSION [None]
  - UNEVALUABLE EVENT [None]
  - OFF LABEL USE [None]
